FAERS Safety Report 15793232 (Version 1)
Quarter: 2019Q1

REPORT INFORMATION
  Report Type: Spontaneous
  Country: US (occurrence: US)
  Receive Date: 20190107
  Receipt Date: 20190107
  Transmission Date: 20190417
  Serious: No
  Sender: FDA-Public Use
  Company Number: US-TEVA-2018-US-988382

PATIENT

DRUGS (1)
  1. LANSOPRAZOLE. [Suspect]
     Active Substance: LANSOPRAZOLE
     Dosage: DELAYED-RELEASE ORALLY DISINTEGRATING TABLET

REACTIONS (2)
  - Adverse reaction [Unknown]
  - Product substitution issue [Unknown]
